FAERS Safety Report 24139467 (Version 1)
Quarter: 2024Q3

REPORT INFORMATION
  Report Type: Spontaneous
  Country: US (occurrence: US)
  Receive Date: 20240726
  Receipt Date: 20240726
  Transmission Date: 20241016
  Serious: Yes (Life-Threatening, Hospitalization, Other)
  Sender: PANACEA BIOTEC
  Company Number: US-PBT-009549

PATIENT
  Age: 50 Year
  Sex: Female

DRUGS (4)
  1. TACROLIMUS [Suspect]
     Active Substance: TACROLIMUS
     Indication: Prophylaxis against transplant rejection
     Route: 065
     Dates: start: 2022
  2. PREDNISONE [Suspect]
     Active Substance: PREDNISONE
     Indication: Prophylaxis against transplant rejection
     Route: 065
     Dates: start: 2022
  3. BECLOMETHASONE [Suspect]
     Active Substance: BECLOMETHASONE
     Indication: Prophylaxis against transplant rejection
     Route: 065
     Dates: start: 2022
  4. BUDESONIDE [Suspect]
     Active Substance: BUDESONIDE
     Indication: Prophylaxis against transplant rejection
     Route: 065
     Dates: start: 2022

REACTIONS (8)
  - Pneumocystis jirovecii pneumonia [Recovering/Resolving]
  - Disease progression [Recovered/Resolved]
  - Acute myeloid leukaemia [Recovered/Resolved]
  - Respiratory failure [Unknown]
  - Cytomegalovirus chorioretinitis [Unknown]
  - Rhinovirus infection [Unknown]
  - Acute graft versus host disease [Unknown]
  - Product use in unapproved indication [Unknown]

NARRATIVE: CASE EVENT DATE: 20220101
